FAERS Safety Report 4450819-6 (Version None)
Quarter: 2004Q3

REPORT INFORMATION
  Report Type: 
  Country: None (occurrence: None)
  Receive Date: 20040916
  Receipt Date: 20011002
  Transmission Date: 20050211
  Serious: Yes (Other)
  Sender: FDA-Public Use
  Company Number: US-BRISTOL-MYERS SQUIBB COMPANY-11031317

PATIENT
  Age: 34 Year
  Sex: Female

DRUGS (9)
  1. STADOL [Suspect]
     Route: 045
     Dates: start: 19990209, end: 20000501
  2. STADOL [Suspect]
     Dosage: ROUTE: IM AND IV
     Route: 030
     Dates: start: 19930223
  3. PROMETHAZINE [Concomitant]
  4. RANITIDINE [Concomitant]
  5. AMITRIPTYLINE HCL [Concomitant]
  6. ULTRAM [Concomitant]
  7. NAPROXEN [Concomitant]
  8. HYDROCODONE + ACETAMINOPHEN [Concomitant]
  9. METHYLPREDNISOLONE [Concomitant]

REACTIONS (2)
  - DEPENDENCE [None]
  - DRUG WITHDRAWAL SYNDROME [None]
